FAERS Safety Report 8900163 (Version 1)
Quarter: 2012Q4

REPORT INFORMATION
  Report Type: 
  Country: US (occurrence: US)
  Receive Date: 20121108
  Receipt Date: 20121108
  Transmission Date: 20130627
  Serious: No
  Sender: FDA-Public Use
  Company Number: US-AMGEN-USASP2012037452

PATIENT
  Age: 70 Year
  Sex: Male
  Weight: 102.4 kg

DRUGS (11)
  1. ENBREL [Suspect]
     Indication: PRODUCT USED FOR UNKNOWN INDICATION
     Dosage: 50 mg/ml, qwk
     Route: 058
  2. CLONAZEPAM [Concomitant]
     Dosage: 1 mg, UNK
  3. SYNTHROID [Concomitant]
     Dosage: 0.1 mg, UNK
  4. ALLOPURINOL [Concomitant]
     Dosage: 100 mg, UNK
  5. COZAAR [Concomitant]
     Dosage: 25 mg, UNK
  6. CRESTOR [Concomitant]
     Dosage: 20 mg, UNK
  7. FOLIC ACID [Concomitant]
     Dosage: UNK
  8. VITAMIN C                          /00008001/ [Concomitant]
     Dosage: 1000 mg, UNK
  9. ASPIRIN [Concomitant]
     Dosage: 81 mg, UNK
  10. CLOBETASOL [Concomitant]
     Dosage: 0.5 %, UNK
  11. DOVONEX [Concomitant]
     Dosage: 0.005 %, UNK

REACTIONS (1)
  - Injection site reaction [Unknown]
